FAERS Safety Report 8785482 (Version 2)
Quarter: 2012Q4

REPORT INFORMATION
  Report Type: 
  Country: US (occurrence: US)
  Receive Date: 20120914
  Receipt Date: 20120914
  Transmission Date: 20130627
  Serious: Yes (Hospitalization, Disabling, Other)
  Sender: FDA-Public Use
  Company Number: US-009507513-1203USA03354

PATIENT

DRUGS (9)
  1. FOSAMAX [Suspect]
     Indication: BONE DENSITY ABNORMAL
     Dosage: 10 mg, qd
     Route: 048
     Dates: start: 20001108
  2. FOSAMAX [Suspect]
     Indication: OSTEOPOROSIS
     Dosage: 70 mg, QW
     Route: 048
     Dates: start: 20021209, end: 20110801
  3. FOSAMAX [Suspect]
     Dosage: 70 mg, UNK
     Route: 048
     Dates: start: 201010, end: 201107
  4. FOSAMAX [Suspect]
     Indication: OSTEOPOROSIS
     Dosage: 10 mg, UNK
     Route: 048
     Dates: start: 20010508
  5. FOSAMAX [Suspect]
     Indication: OSTEOPENIA
     Dosage: UNK
     Route: 048
     Dates: start: 200212, end: 201108
  6. PAXIL [Concomitant]
     Indication: DEPRESSION
  7. FOSAMAX D [Suspect]
     Indication: OSTEOPOROSIS
     Route: 048
     Dates: start: 20070426
  8. FOSAMAX [Suspect]
     Indication: OSTEOPOROSIS
     Dosage: 70 mg, UNK
     Route: 048
     Dates: start: 20100221, end: 20110728
  9. FOSAMAX [Suspect]
     Indication: OSTEOPENIA

REACTIONS (25)
  - Femur fracture [Unknown]
  - Femur fracture [Unknown]
  - Bone density decreased [Unknown]
  - Osteoporosis [Unknown]
  - Stress fracture [Unknown]
  - Femur fracture [Unknown]
  - Spinal fracture [Unknown]
  - Hypercholesterolaemia [Unknown]
  - Eczema eyelids [Unknown]
  - Chest pain [Unknown]
  - Upper limb fracture [Unknown]
  - Stress [Unknown]
  - Affective disorder [Unknown]
  - Limb asymmetry [Unknown]
  - Bursitis [Unknown]
  - Haemoglobin decreased [Unknown]
  - Haematocrit decreased [Unknown]
  - Hypertension [Unknown]
  - Anxiety [Unknown]
  - Upper limb fracture [Unknown]
  - Tonsillar disorder [Unknown]
  - Adenoidal disorder [Unknown]
  - Musculoskeletal disorder [Unknown]
  - Fall [Unknown]
  - Pain in extremity [Unknown]
